FAERS Safety Report 4703227-4 (Version None)
Quarter: 2005Q2

REPORT INFORMATION
  Report Type: 
  Country: None (occurrence: None)
  Receive Date: 20050628
  Receipt Date: 20050615
  Transmission Date: 20051028
  Serious: Yes (Hospitalization)
  Sender: FDA-Public Use
  Company Number: 2005086440

PATIENT
  Age: 64 Year
  Sex: Male
  Weight: 61 kg

DRUGS (8)
  1. PREGABALIN (PREGABALIN) [Suspect]
     Indication: NEUROPATHIC PAIN
     Dosage: 600 MG (`150 MG, 2 IN 1 D), ORAL
     Route: 048
     Dates: start: 20031025
  2. BACLOFEN [Concomitant]
  3. FLUOXETINE [Concomitant]
  4. CLONAZEPAM [Concomitant]
  5. TEMAZEPAM [Concomitant]
  6. BISACODYL (BISACODYL) [Concomitant]
  7. CELECOXIB (CELECOXIB) [Concomitant]
  8. BISACODYL (BISACODYL) [Concomitant]

REACTIONS (5)
  - ABDOMINAL PAIN [None]
  - CONDITION AGGRAVATED [None]
  - CONSTIPATION [None]
  - FAECALOMA [None]
  - RECTAL HAEMORRHAGE [None]
